FAERS Safety Report 9123669 (Version 2)
Quarter: 2013Q2

REPORT INFORMATION
  Report Type: Spontaneous
  Country: DE (occurrence: DE)
  Receive Date: 20130227
  Receipt Date: 20130503
  Transmission Date: 20140414
  Serious: Yes (Death, Hospitalization)
  Sender: FDA-Public Use
  Company Number: DE-ELI_LILLY_AND_COMPANY-DE201302007911

PATIENT
  Age: 73 Year
  Sex: Female
  Weight: 61 kg

DRUGS (11)
  1. ALIMTA [Suspect]
     Indication: LUNG ADENOCARCINOMA METASTATIC
     Dosage: 800 MG, UNKNOWN
     Route: 042
     Dates: start: 20130207
  2. CARBOPLATIN [Concomitant]
     Indication: LUNG ADENOCARCINOMA METASTATIC
     Dosage: 300 MG, UNKNOWN
     Dates: start: 20130207
  3. VITAMIN B12 [Concomitant]
  4. FOLSAN [Concomitant]
     Dosage: 0.4 MG, UNK
  5. MST [Concomitant]
     Dosage: 20 MG, BID
  6. NOVALGIN [Concomitant]
     Dosage: 500 MG, TID
  7. L-THYROXIN [Concomitant]
     Dosage: 100 UG, QD
  8. PRAVASTAN [Concomitant]
     Dosage: 20 MG, QD
  9. ZOMETA [Concomitant]
     Dosage: 4 MG, UNKNOWN
     Route: 042
     Dates: start: 20130208
  10. KEVATRIL [Concomitant]
     Dosage: 1 MG, UNKNOWN
     Route: 048
     Dates: start: 20130207
  11. DEXAMETHASONE [Concomitant]
     Dosage: 8 MG, UNKNOWN
     Route: 048
     Dates: start: 20130207

REACTIONS (8)
  - Renal failure [Fatal]
  - Decreased appetite [Unknown]
  - Dehydration [Unknown]
  - Asthenia [Unknown]
  - Oral candidiasis [Unknown]
  - Mucosal inflammation [Unknown]
  - Pancytopenia [Unknown]
  - Off label use [Unknown]
